FAERS Safety Report 9983013 (Version 1)
Quarter: 2014Q1

REPORT INFORMATION
  Report Type: Report from Study
  Country: US (occurrence: US)
  Receive Date: 20140307
  Receipt Date: 20140307
  Transmission Date: 20141002
  Serious: No
  Sender: FDA-Public Use
  Company Number: US-ABBVIE-13P-163-1176534-00

PATIENT
  Sex: Female

DRUGS (3)
  1. HUMIRA [Suspect]
     Indication: CROHN^S DISEASE
     Dates: end: 2013
  2. HUMIRA [Suspect]
     Dates: start: 201311
  3. NORCO [Concomitant]
     Indication: PAIN
     Dosage: 7.5/325 MG 1-2 TABLETS DAILY

REACTIONS (4)
  - Haematochezia [Recovering/Resolving]
  - Crohn^s disease [Recovering/Resolving]
  - Muscle spasms [Recovering/Resolving]
  - Drug effect incomplete [Unknown]
